FAERS Safety Report 13874157 (Version 2)
Quarter: 2017Q3

REPORT INFORMATION
  Report Type: Spontaneous
  Country: US (occurrence: US)
  Receive Date: 20170816
  Receipt Date: 20170822
  Transmission Date: 20171127
  Serious: No
  Sender: FDA-Public Use
  Company Number: US-ACTELION-A-NJ2017-158025

PATIENT
  Age: 57 Year
  Sex: Female

DRUGS (2)
  1. SILDENAFIL. [Suspect]
     Active Substance: SILDENAFIL
     Indication: PRODUCT USED FOR UNKNOWN INDICATION
     Route: 065
  2. OPSUMIT [Suspect]
     Active Substance: MACITENTAN
     Indication: PULMONARY ARTERIAL HYPERTENSION
     Dosage: 10 MG, QD
     Route: 048
     Dates: start: 20170721

REACTIONS (8)
  - Dizziness [Recovered/Resolved]
  - Arthralgia [Unknown]
  - Pain [Recovered/Resolved]
  - Back pain [Unknown]
  - Somnolence [Recovered/Resolved]
  - Nasal congestion [Recovered/Resolved]
  - Feeling abnormal [Recovered/Resolved]
  - Fatigue [Unknown]

NARRATIVE: CASE EVENT DATE: 20170722
